FAERS Safety Report 9448927 (Version 1)
Quarter: 2013Q3

REPORT INFORMATION
  Report Type: Spontaneous
  Country: US (occurrence: US)
  Receive Date: 20130808
  Receipt Date: 20130808
  Transmission Date: 20140515
  Serious: No
  Sender: FDA-Public Use
  Company Number: US-009507513-1308USA002834

PATIENT
  Age: 57 Year
  Sex: Female
  Weight: 94.33 kg

DRUGS (3)
  1. SAPHRIS [Suspect]
     Indication: BIPOLAR DISORDER
     Dosage: 20 MG, QD
     Route: 060
     Dates: start: 20130624
  2. WELLBUTRIN [Concomitant]
  3. PAXIL [Concomitant]

REACTIONS (2)
  - Weight increased [Unknown]
  - Product blister packaging issue [Unknown]
